FAERS Safety Report 5510742-2 (Version None)
Quarter: 2007Q4

REPORT INFORMATION
  Report Type: 
  Country: None (occurrence: None)
  Receive Date: 20071108
  Receipt Date: 20071030
  Transmission Date: 20080405
  Serious: Yes (Hospitalization)
  Sender: FDA-Public Use
  Company Number: B0462872A

PATIENT
  Age: 69 Year
  Sex: Male
  Weight: 72 kg

DRUGS (12)
  1. TRACRIUM [Suspect]
     Route: 065
  2. AUGMENTIN [Suspect]
     Route: 065
  3. NIMBEX [Suspect]
     Route: 065
  4. KETOPROFEN [Suspect]
     Route: 065
  5. CIPROFLOXACIN HCL [Suspect]
     Route: 065
  6. SEVOFLURANE [Suspect]
     Route: 065
  7. DIPRIVAN [Suspect]
     Route: 065
  8. SUFENTANIL CITRATE [Suspect]
     Route: 065
  9. ETOMIDATE [Suspect]
     Route: 065
  10. BACTRIM [Suspect]
     Route: 065
  11. VFEND [Suspect]
     Route: 065
  12. SPORANOX [Suspect]
     Route: 065

REACTIONS (19)
  - C-REACTIVE PROTEIN INCREASED [None]
  - DERMATOMYOSITIS [None]
  - DYSPNOEA [None]
  - ERYTHEMA [None]
  - LEG AMPUTATION [None]
  - LUNG DISORDER [None]
  - LYMPHOCELE [None]
  - LYMPHOPENIA [None]
  - NEOPLASM [None]
  - NODULE [None]
  - NORMOCHROMIC NORMOCYTIC ANAEMIA [None]
  - PERIPHERAL ISCHAEMIA [None]
  - PITYRIASIS [None]
  - PROTEINURIA [None]
  - PRURIGO [None]
  - PYREXIA [None]
  - RALES [None]
  - SKIN NECROSIS [None]
  - TOXIC SKIN ERUPTION [None]
